FAERS Safety Report 4552929-1 (Version None)
Quarter: 2005Q1

REPORT INFORMATION
  Report Type: 
  Country: None (occurrence: None)
  Receive Date: 20050114
  Receipt Date: 20041229
  Transmission Date: 20050727
  Serious: Yes (Hospitalization)
  Sender: FDA-Public Use
  Company Number: FR-JNJFOC-20050101804

PATIENT
  Age: 82 Year
  Sex: Female

DRUGS (7)
  1. TRAMADOL HCL [Suspect]
     Indication: DRUG USE FOR UNKNOWN INDICATION
     Route: 049
  2. LANZOR [Concomitant]
     Route: 049
  3. DIGOXIN [Concomitant]
     Indication: ATRIAL FLUTTER
     Route: 049
  4. DIGOXIN [Concomitant]
     Indication: ATRIAL FIBRILLATION
     Route: 049
  5. PROZAC [Concomitant]
     Route: 049
  6. SERESTA [Concomitant]
     Indication: ANXIETY
     Route: 049
  7. NEURONTIN [Concomitant]
     Indication: EPILEPSY
     Route: 049

REACTIONS (3)
  - CONFUSIONAL STATE [None]
  - DELIRIUM [None]
  - HALLUCINATION, VISUAL [None]
